FAERS Safety Report 13085334 (Version 1)
Quarter: 2017Q1

REPORT INFORMATION
  Report Type: Report from Study
  Country: US (occurrence: US)
  Receive Date: 20170104
  Receipt Date: 20170104
  Transmission Date: 20170428
  Serious: Yes (Other)
  Sender: FDA-Public Use
  Company Number: US-JNJFOC-20160822077

PATIENT
  Sex: Female

DRUGS (20)
  1. ELIQUIS [Concomitant]
     Active Substance: APIXABAN
  2. CYTOMEL [Concomitant]
     Active Substance: LIOTHYRONINE SODIUM
  3. LANOXIN [Concomitant]
     Active Substance: DIGOXIN
  4. IRON [Concomitant]
     Active Substance: IRON
  5. GABAPENTIN. [Concomitant]
     Active Substance: GABAPENTIN
  6. ESTRACE [Concomitant]
     Active Substance: ESTRADIOL
  7. BUSPAR [Concomitant]
     Active Substance: BUSPIRONE HYDROCHLORIDE
  8. TOPROL XL [Concomitant]
     Active Substance: METOPROLOL SUCCINATE
  9. HYDROCORTISONE ACETATE. [Concomitant]
     Active Substance: HYDROCORTISONE ACETATE
  10. LUMIGAN [Concomitant]
     Active Substance: BIMATOPROST
  11. AZOPT [Concomitant]
     Active Substance: BRINZOLAMIDE
  12. BIOTIN [Concomitant]
     Active Substance: BIOTIN
  13. TEMAZEPAM. [Concomitant]
     Active Substance: TEMAZEPAM
  14. COSOPT [Concomitant]
     Active Substance: DORZOLAMIDE HYDROCHLORIDE\TIMOLOL MALEATE
  15. FLECAINIDE [Concomitant]
     Active Substance: FLECAINIDE
  16. PRILOSEC [Concomitant]
     Active Substance: OMEPRAZOLE MAGNESIUM
  17. MIRALAX [Concomitant]
     Active Substance: POLYETHYLENE GLYCOL 3350
  18. IMBRUVICA [Suspect]
     Active Substance: IBRUTINIB
     Indication: WALDENSTROM^S MACROGLOBULINAEMIA
     Route: 048
     Dates: start: 20160707
  19. RETIN-A [Concomitant]
     Active Substance: TRETINOIN
  20. ZANTAC [Concomitant]
     Active Substance: RANITIDINE HYDROCHLORIDE

REACTIONS (3)
  - Arrhythmia [Unknown]
  - Atrial fibrillation [Unknown]
  - Balance disorder [Unknown]
